FAERS Safety Report 22354491 (Version 2)
Quarter: 2023Q2

REPORT INFORMATION
  Report Type: Spontaneous
  Country: HU (occurrence: HU)
  Receive Date: 20230523
  Receipt Date: 20230608
  Transmission Date: 20230722
  Serious: No
  Sender: FDA-Public Use
  Company Number: HU-ABBVIE-5174934

PATIENT
  Age: 66 Year
  Sex: Male

DRUGS (1)
  1. VENETOCLAX [Suspect]
     Active Substance: VENETOCLAX
     Indication: Cutaneous T-cell lymphoma
     Dosage: FIRST ADMIN DATE- 2022
     Route: 048
     Dates: end: 202209

REACTIONS (1)
  - Off label use [Unknown]
